FAERS Safety Report 7743475-2 (Version None)
Quarter: 2011Q3

REPORT INFORMATION
  Report Type: 
  Country: None (occurrence: None)
  Receive Date: 20110912
  Receipt Date: 20110908
  Transmission Date: 20111222
  Serious: Yes (Other)
  Sender: FDA-Public Use
  Company Number: AU-ABBOTT-11P-008-0852641-00

PATIENT

DRUGS (3)
  1. CELECOXIB [Suspect]
  2. HUMIRA [Suspect]
     Indication: PRODUCT USED FOR UNKNOWN INDICATION
     Dates: start: 20100501, end: 20101101
  3. METHOTREXATE [Concomitant]
     Indication: PRODUCT USED FOR UNKNOWN INDICATION
     Dates: end: 20101101

REACTIONS (6)
  - PLANTAR FASCIITIS [None]
  - MOBILITY DECREASED [None]
  - ARTHRALGIA [None]
  - TENDONITIS [None]
  - PAIN [None]
  - GASTROINTESTINAL DISORDER [None]
